FAERS Safety Report 8187595-X (Version None)
Quarter: 2012Q1

REPORT INFORMATION
  Report Type: 
  Country: None (occurrence: None)
  Receive Date: 20120302
  Receipt Date: 20120217
  Transmission Date: 20120608
  Serious: Yes (Hospitalization)
  Sender: FDA-Public Use
  Company Number: 2011HGS-003048

PATIENT
  Age: 82 Year
  Sex: Male
  Weight: 83.9154 kg

DRUGS (12)
  1. BENLYSTA [Suspect]
     Indication: SYSTEMIC LUPUS ERYTHEMATOSUS
     Dosage: 870 MG, 1 IN 28 D, INTRAVENOUS DRIP
     Route: 042
     Dates: end: 20111102
  2. ASPIRIN [Concomitant]
  3. BUSPRIONE (BUSPIRONE HYDROCHLORIDE)(BUSPIRONE HYDROCHLORIDE) [Concomitant]
  4. LORTAB (VICODIN)(PARACETAMOL, HYDROCODONE BITARTRATE) [Concomitant]
  5. AMLODIPINE [Concomitant]
  6. KLONOPIN [Concomitant]
  7. MAGOXIDE (MAGNESIUM OXIDE) (MAGNESIUM OXIDE) [Concomitant]
  8. BENAZEPRIL HYDROCHLORIDE [Concomitant]
  9. LOTREL (AMLODIPINE BESYLATE W/BENAZEPRIL HYDROCHLOR)(BENAZEPRIL HYDROC [Concomitant]
  10. PRILOSEC (OMEPRAZOLE) (OMEPRAZOLE) [Concomitant]
  11. KEPPRA [Concomitant]
  12. AMBIEN [Concomitant]

REACTIONS (5)
  - DRUG INEFFECTIVE [None]
  - SOMNAMBULISM [None]
  - CONVULSION [None]
  - UNEVALUABLE EVENT [None]
  - CONFUSIONAL STATE [None]
